FAERS Safety Report 6558111-0 (Version None)
Quarter: 2010Q1

REPORT INFORMATION
  Report Type: 
  Country: None (occurrence: None)
  Receive Date: 20100129
  Receipt Date: 20100128
  Transmission Date: 20100710
  Serious: Yes (Life-Threatening)
  Sender: FDA-Public Use
  Company Number: A0841746A

PATIENT
  Sex: Female
  Weight: 68 kg

DRUGS (4)
  1. LAPATINIB [Suspect]
     Indication: BREAST CANCER
     Dosage: 1250MG PER DAY
     Route: 048
     Dates: start: 20100119, end: 20100126
  2. VINORELBINE [Suspect]
     Indication: BREAST CANCER
     Dosage: 25MGM2 CYCLIC
     Route: 042
     Dates: start: 20100119
  3. LOPERAMIDE [Concomitant]
     Dosage: 4MG SINGLE DOSE
     Route: 048
     Dates: start: 20100125
  4. TRAMAL [Concomitant]
     Indication: PAIN
     Dosage: 100MG THREE TIMES PER DAY
     Dates: start: 20100124, end: 20100124

REACTIONS (2)
  - ALANINE AMINOTRANSFERASE INCREASED [None]
  - HYPERBILIRUBINAEMIA [None]
